FAERS Safety Report 5352335-6 (Version None)
Quarter: 2007Q2

REPORT INFORMATION
  Report Type: 
  Country: None (occurrence: None)
  Receive Date: 20070607
  Receipt Date: 20070607
  Transmission Date: 20071010
  Serious: Yes (Death)
  Sender: FDA-Public Use
  Company Number: None

PATIENT
  Age: 69 Year
  Sex: Male
  Weight: 130 kg

DRUGS (11)
  1. ENOXAPARIN SODIUM [Suspect]
     Indication: ATRIAL FIBRILLATION
     Dosage: 120MG Q12H SQ
     Route: 058
     Dates: start: 20061101, end: 20061111
  2. ENOXAPARIN SODIUM [Suspect]
     Indication: ISCHAEMIC STROKE
     Dosage: 120MG Q12H SQ
     Route: 058
     Dates: start: 20061101, end: 20061111
  3. WARFARIN SODIUM [Suspect]
     Indication: ATRIAL FIBRILLATION
     Dosage: 10MG DAILY PO
     Route: 048
     Dates: start: 20061108, end: 20061110
  4. WARFARIN SODIUM [Suspect]
     Indication: ISCHAEMIC STROKE
     Dosage: 10MG DAILY PO
     Route: 048
     Dates: start: 20061108, end: 20061110
  5. ASPIRIN [Concomitant]
  6. AMIODARONE HCL [Concomitant]
  7. PRAVASTATIN [Concomitant]
  8. DOCUSATE [Concomitant]
  9. INSULIN [Concomitant]
  10. KETOROLAC TROMETHAMINE [Concomitant]
  11. INDOMETHACIN [Concomitant]

REACTIONS (3)
  - ARTHRALGIA [None]
  - HYPOTENSION [None]
  - RETROPERITONEAL HAEMORRHAGE [None]
